FAERS Safety Report 4982828-2 (Version None)
Quarter: 2006Q2

REPORT INFORMATION
  Report Type: 
  Country: None (occurrence: None)
  Receive Date: 20060420
  Receipt Date: 20060412
  Transmission Date: 20061013
  Serious: Yes (Other)
  Sender: FDA-Public Use
  Company Number: 2006050921

PATIENT
  Sex: Female
  Weight: 64.8644 kg

DRUGS (2)
  1. ZYRTEC [Suspect]
     Indication: MULTIPLE ALLERGIES
     Dosage: 10 MG (10 MG, 1 IN 1 D) ORAL
     Route: 048
  2. VITAMINS (VITAMINS) [Suspect]
     Indication: MACULAR DEGENERATION

REACTIONS (4)
  - CARDIAC PACEMAKER INSERTION [None]
  - INCORRECT DOSE ADMINISTERED [None]
  - MACULAR DEGENERATION [None]
  - VERTIGO [None]
